FAERS Safety Report 7026736-4 (Version None)
Quarter: 2010Q4

REPORT INFORMATION
  Report Type: 
  Country: None (occurrence: None)
  Receive Date: 20101004
  Receipt Date: 20100924
  Transmission Date: 20110411
  Serious: Yes (Other)
  Sender: FDA-Public Use
  Company Number: US-AMGEN-KDL441050

PATIENT
  Sex: Female

DRUGS (1)
  1. ENBREL [Suspect]
     Indication: PSORIASIS
     Route: 058

REACTIONS (7)
  - ANAPHYLACTIC REACTION [None]
  - COMPARTMENT SYNDROME [None]
  - NERVE INJURY [None]
  - PHARYNGEAL OEDEMA [None]
  - PSORIASIS [None]
  - SWOLLEN TONGUE [None]
  - URTICARIA [None]
